FAERS Safety Report 10141583 (Version 1)
Quarter: 2014Q2

REPORT INFORMATION
  Report Type: Spontaneous
  Country: US (occurrence: US)
  Receive Date: 20140429
  Receipt Date: 20140429
  Transmission Date: 20141212
  Serious: Yes (Hospitalization)
  Sender: FDA-Public Use
  Company Number: US-PFIZER INC-2014116293

PATIENT
  Age: 80 Year
  Sex: Male
  Weight: 68.6 kg

DRUGS (2)
  1. IBUPROFEN [Suspect]
     Dosage: 100 MG ONCE EVERY 6 HOURS
     Route: 065
  2. XARELTO [Suspect]
     Indication: DEEP VEIN THROMBOSIS
     Dosage: 15 MG, 2X/DAY
     Route: 048

REACTIONS (3)
  - Epistaxis [Recovering/Resolving]
  - International normalised ratio increased [Unknown]
  - Hypotension [Unknown]
